FAERS Safety Report 5674132-4 (Version None)
Quarter: 2008Q1

REPORT INFORMATION
  Report Type: 
  Country: None (occurrence: None)
  Receive Date: 20080320
  Receipt Date: 20080128
  Transmission Date: 20080703
  Serious: Yes (Death)
  Sender: FDA-Public Use
  Company Number: US-TYCO HEALTHCARE/MALLINCKRODT-T200800386

PATIENT

DRUGS (9)
  1. ACETAMINOPHEN AND HYDROCODONE BITARTRATE [Suspect]
     Route: 048
  2. OXYCODONE HCL [Suspect]
     Route: 048
  3. FENTANYL [Suspect]
     Route: 048
  4. CARISOPRODOL [Suspect]
     Route: 048
  5. DIPHENHYDRAMINE HCL [Suspect]
     Route: 048
  6. ACETAMINOPHEN [Suspect]
     Route: 048
  7. CITALOPRAM HYDROBROMIDE [Suspect]
     Route: 048
  8. BUPROPION HCL [Suspect]
     Route: 048
  9. TRAZODONE HCL [Suspect]
     Route: 048

REACTIONS (1)
  - DEATH [None]
